FAERS Safety Report 4838465-3 (Version None)
Quarter: 2005Q4

REPORT INFORMATION
  Report Type: 
  Country: None (occurrence: None)
  Receive Date: 20051129
  Receipt Date: 20051116
  Transmission Date: 20060501
  Serious: Yes (Other)
  Sender: FDA-Public Use
  Company Number: PHNR2005AU01635

PATIENT
  Age: 43 Year
  Sex: Male

DRUGS (1)
  1. CLOZARIL [Suspect]
     Dosage: 12.5-300 MG DAILY
     Dates: start: 20040807

REACTIONS (8)
  - ANISOCYTOSIS [None]
  - BASOPHILIA [None]
  - LYMPHOCYTOSIS [None]
  - MICROCYTIC ANAEMIA [None]
  - MICROCYTOSIS [None]
  - POIKILOCYTOSIS [None]
  - RED BLOOD CELL ABNORMALITY [None]
  - RED BLOOD CELL ELLIPTOCYTES PRESENT [None]
